FAERS Safety Report 10387662 (Version 1)
Quarter: 2014Q3

REPORT INFORMATION
  Report Type: Spontaneous
  Country: US (occurrence: None)
  Receive Date: 20140814
  Receipt Date: 20140814
  Transmission Date: 20150326
  Serious: Yes (Hospitalization, Disabling)
  Sender: FDA-Public Use
  Company Number: None

PATIENT
  Age: 60 Year
  Sex: Male
  Weight: 86.18 kg

DRUGS (1)
  1. SIMVASTATIN. [Suspect]
     Active Substance: SIMVASTATIN
     Indication: BLOOD CHOLESTEROL
     Dosage: 1  PILL  ONCE DAILY TAKEN BY MOUTH
     Route: 048
     Dates: start: 20061009, end: 20130226

REACTIONS (4)
  - Renal failure [None]
  - Rhabdomyolysis [None]
  - Coma [None]
  - Dialysis [None]

NARRATIVE: CASE EVENT DATE: 20130322
